FAERS Safety Report 8854209 (Version 2)
Quarter: 2013Q1

REPORT INFORMATION
  Report Type: Spontaneous
  Country: US (occurrence: None)
  Receive Date: 20121018
  Receipt Date: 20121105
  Transmission Date: 20140127
  Serious: Yes (Hospitalization)
  Sender: FDA-Public Use
  Company Number: AMAG201203122

PATIENT
  Age: 61 Year
  Sex: Female
  Weight: 75.75 kg

DRUGS (7)
  1. FERAHEME [Suspect]
     Indication: IRON DEFICIENCY
     Route: 042
     Dates: start: 20121002, end: 20121002
  2. PLAVIX (CLOPIDOGREL BISULFATE) [Concomitant]
  3. COREG (CARVEDILOL) [Concomitant]
  4. LEVEMIR (INSULIN DETEMIR) [Concomitant]
  5. LASIX (FUROSEMIDE SODIUM) [Concomitant]
  6. LISINOPRIL (LISINOPRIL) [Concomitant]
  7. NOVOLOG (INSULIN ASPART) [Concomitant]

REACTIONS (6)
  - Blood pressure decreased [None]
  - Chills [None]
  - Body temperature increased [None]
  - Vomiting [None]
  - Nausea [None]
  - Dizziness [None]
